FAERS Safety Report 6216812-8 (Version None)
Quarter: 2009Q2

REPORT INFORMATION
  Report Type: 
  Country: None (occurrence: None)
  Receive Date: 20090603
  Receipt Date: 20090603
  Transmission Date: 20091009
  Serious: Yes (Hospitalization, Disabling)
  Sender: FDA-Public Use
  Company Number: None

PATIENT
  Sex: Female
  Weight: 66.2252 kg

DRUGS (4)
  1. DEPAKOTE ER [Suspect]
     Dosage: 2 500 MILLIGRAMS 2 BEDTIME
     Dates: start: 20020101, end: 20090101
  2. PROLIXIN [Suspect]
     Dosage: 15 MILLIGRAMS 1 BEDTIME
     Dates: start: 19870101, end: 20090101
  3. ZYPREXA [Suspect]
     Indication: ANALGESIC THERAPY
     Dates: start: 19990101, end: 20090101
  4. ZYPREXA [Suspect]
     Indication: MYALGIA
     Dates: start: 19990101, end: 20090101

REACTIONS (12)
  - BACK PAIN [None]
  - BALANCE DISORDER [None]
  - DIZZINESS [None]
  - FEELING ABNORMAL [None]
  - HEADACHE [None]
  - HEART RATE INCREASED [None]
  - JOINT STIFFNESS [None]
  - MUSCLE DISORDER [None]
  - PHOTOSENSITIVITY REACTION [None]
  - POOR QUALITY SLEEP [None]
  - REFLEXES ABNORMAL [None]
  - TEMPERATURE INTOLERANCE [None]
